FAERS Safety Report 12116804 (Version 3)
Quarter: 2016Q1

REPORT INFORMATION
  Report Type: Report from Study
  Country: CH (occurrence: CH)
  Receive Date: 20160225
  Receipt Date: 20160308
  Transmission Date: 20160526
  Serious: Yes (Hospitalization, Other)
  Sender: FDA-Public Use
  Company Number: CH-ABBVIE-16P-151-1567598-00

PATIENT
  Age: 55 Year
  Sex: Female

DRUGS (5)
  1. DUODOPA [Suspect]
     Active Substance: CARBIDOPA\LEVODOPA
     Dosage: CONTINUOUS DOSE DAY: 1.5ML/H
     Route: 050
     Dates: start: 20160222
  2. DUODOPA [Suspect]
     Active Substance: CARBIDOPA\LEVODOPA
     Indication: PARKINSON^S DISEASE
     Dosage: CD DAY: 1.6ML/H, 24H THERAPY
     Route: 050
     Dates: start: 20160119
  3. DUODOPA [Suspect]
     Active Substance: CARBIDOPA\LEVODOPA
     Dosage: CD DAY: 4ML/H, 24H THERAPY
     Route: 050
     Dates: start: 201602, end: 201602
  4. DUODOPA [Suspect]
     Active Substance: CARBIDOPA\LEVODOPA
     Dosage: CONTINUOUS DOSE DAY: 1.4ML/H
     Route: 050
     Dates: start: 20160222, end: 20160222
  5. DUODOPA [Suspect]
     Active Substance: CARBIDOPA\LEVODOPA
     Dosage: MD: 6ML, CD DAY: 1.3ML/H, CD NIGHT: 1.5ML/H, ED: 1.5ML
     Route: 050

REACTIONS (7)
  - Neuropathy peripheral [Unknown]
  - Freezing phenomenon [Recovered/Resolved]
  - Family stress [Unknown]
  - Abasia [Unknown]
  - Attention-seeking behaviour [Unknown]
  - Hyperkinesia [Recovered/Resolved]
  - Bradykinesia [Recovered/Resolved]

NARRATIVE: CASE EVENT DATE: 20160216
